FAERS Safety Report 11898250 (Version 2)
Quarter: 2016Q1

REPORT INFORMATION
  Report Type: Spontaneous
  Country: GB (occurrence: GB)
  Receive Date: 20160108
  Receipt Date: 20160108
  Transmission Date: 20160526
  Serious: Yes (Life-Threatening, Hospitalization, Other)
  Sender: FDA-Public Use
  Company Number: GB-ACTAVIS-2016-00110

PATIENT
  Age: 67 Year
  Sex: Male
  Weight: 70 kg

DRUGS (13)
  1. ASPIRIN. [Suspect]
     Active Substance: ASPIRIN
     Indication: CEREBROVASCULAR ACCIDENT
     Dosage: UNK
     Route: 048
     Dates: start: 201511, end: 201511
  2. CEFTRIAXONE (UNKNOWN) [Suspect]
     Active Substance: CEFTRIAXONE
     Indication: PRODUCT USED FOR UNKNOWN INDICATION
     Dosage: UNK
     Route: 042
     Dates: start: 201511, end: 201511
  3. CHLORAMPHENICOL (UNKNOWN) [Suspect]
     Active Substance: CHLORAMPHENICOL
     Indication: LOWER RESPIRATORY TRACT INFECTION
     Route: 042
     Dates: start: 201511, end: 201511
  4. ESOMEPRAZOLE (UNKNOWN) [Suspect]
     Active Substance: ESOMEPRAZOLE
     Indication: PRODUCT USED FOR UNKNOWN INDICATION
     Route: 048
     Dates: start: 201511, end: 201511
  5. AMITRIPTYLINE [Concomitant]
     Active Substance: AMITRIPTYLINE
     Indication: PRODUCT USED FOR UNKNOWN INDICATION
     Dosage: 10 MG, QHS
     Route: 065
  6. PROCHLORPERAZINE (UNKNOWN) [Suspect]
     Active Substance: PROCHLORPERAZINE
     Indication: PRODUCT USED FOR UNKNOWN INDICATION
     Dosage: UNK
     Route: 065
     Dates: start: 201511, end: 201511
  7. CLOPIDOGREL [Concomitant]
     Active Substance: CLOPIDOGREL BISULFATE
     Indication: PRODUCT USED FOR UNKNOWN INDICATION
     Dosage: 75 MG, DAILY
     Route: 065
  8. DIAZEPAM (UNKNOWN) [Suspect]
     Active Substance: DIAZEPAM
     Indication: PRODUCT USED FOR UNKNOWN INDICATION
     Route: 042
     Dates: start: 201511, end: 201511
  9. AMIODARONE (UNKNOWN) [Suspect]
     Active Substance: AMIODARONE
     Indication: ATRIAL FIBRILLATION
     Dosage: UNK
     Route: 065
     Dates: start: 201511, end: 201511
  10. PANTOPRAZOLE SODIUM. [Suspect]
     Active Substance: PANTOPRAZOLE SODIUM
     Indication: PRODUCT USED FOR UNKNOWN INDICATION
     Dosage: UNK
     Route: 065
     Dates: start: 201511, end: 201511
  11. PHENYTOIN (AMALLC) [Suspect]
     Active Substance: PHENYTOIN
     Indication: PRODUCT USED FOR UNKNOWN INDICATION
     Dosage: UNK
     Route: 065
     Dates: start: 201511, end: 201511
  12. ATORVASTATIN [Concomitant]
     Active Substance: ATORVASTATIN
     Indication: PRODUCT USED FOR UNKNOWN INDICATION
     Dosage: 20 MG, QHS
     Route: 065
  13. CETIRIZINE [Concomitant]
     Active Substance: CETIRIZINE HYDROCHLORIDE
     Indication: PRODUCT USED FOR UNKNOWN INDICATION
     Dosage: 10 MG, DAILY, AS NECESSARY
     Route: 065

REACTIONS (1)
  - Toxic epidermal necrolysis [Not Recovered/Not Resolved]

NARRATIVE: CASE EVENT DATE: 20151210
